FAERS Safety Report 21031650 (Version 3)
Quarter: 2022Q3

REPORT INFORMATION
  Report Type: Report from Study
  Country: AR (occurrence: None)
  Receive Date: 20220701
  Receipt Date: 20220822
  Transmission Date: 20221027
  Serious: Yes (Other)
  Sender: FDA-Public Use
  Company Number: AR-Merck Healthcare KGaA-9332524

PATIENT
  Age: 18 Year
  Sex: Female

DRUGS (1)
  1. REBIF [Suspect]
     Active Substance: INTERFERON BETA-1A
     Indication: Product used for unknown indication
     Route: 058
     Dates: start: 20220531, end: 20220608

REACTIONS (8)
  - Diplegia [Unknown]
  - Syncope [Unknown]
  - Decreased immune responsiveness [Unknown]
  - Hypoaesthesia [Unknown]
  - Dysuria [Not Recovered/Not Resolved]
  - Muscle strength abnormal [Unknown]
  - Headache [Unknown]
  - Product administration interrupted [Unknown]

NARRATIVE: CASE EVENT DATE: 20220608
